FAERS Safety Report 6279078-9 (Version None)
Quarter: 2009Q3

REPORT INFORMATION
  Report Type: 
  Country: None (occurrence: None)
  Receive Date: 20090720
  Receipt Date: 20090720
  Transmission Date: 20100115
  Serious: No
  Sender: FDA-Public Use
  Company Number: None

PATIENT
  Age: 42 Year
  Sex: Male
  Weight: 99.7913 kg

DRUGS (2)
  1. ZICAM COLD REMEDY NASAL GEL OVER THE COUNTER HOMEOPATHIC MATRIXX INITI [Suspect]
     Indication: NASOPHARYNGITIS
     Dosage: SPRAY EACH NOSTRIL 4 TIMES PER HOUR NASAL
     Route: 045
     Dates: start: 20030801, end: 20090301
  2. ZICAM COLD REMENDYGEL SWABS OVER THE COUNTER HOMEOPATHIC MATROXX INITI [Suspect]
     Indication: NASOPHARYNGITIS
     Dosage: SWAB EACH NOSTRIL 4 TIMES PER HOUR NASAL
     Route: 045
     Dates: start: 20050101, end: 20090630

REACTIONS (3)
  - AGEUSIA [None]
  - ANOSMIA [None]
  - NASAL DISCOMFORT [None]
